FAERS Safety Report 17231770 (Version 1)
Quarter: 2020Q1

REPORT INFORMATION
  Report Type: Spontaneous
  Country: VE (occurrence: VE)
  Receive Date: 20200103
  Receipt Date: 20200103
  Transmission Date: 20200409
  Serious: Yes (Other)
  Sender: FDA-Public Use
  Company Number: NVSC2019VE084796

PATIENT
  Sex: Female

DRUGS (2)
  1. GLIVEC [Suspect]
     Active Substance: IMATINIB MESYLATE
     Indication: CHRONIC MYELOID LEUKAEMIA
     Dosage: 400 MG (4X100MG)
     Route: 065
  2. GLIVEC [Suspect]
     Active Substance: IMATINIB MESYLATE
     Dosage: 300 MG, QD
     Route: 065

REACTIONS (7)
  - Haemoglobin decreased [Unknown]
  - White blood cell count increased [Unknown]
  - Contusion [Unknown]
  - Platelet count decreased [Unknown]
  - Poisoning [Unknown]
  - Haemoglobin increased [Unknown]
  - White blood cell count decreased [Unknown]
